FAERS Safety Report 6334872-0 (Version None)
Quarter: 2009Q3

REPORT INFORMATION
  Report Type: 
  Country: None (occurrence: None)
  Receive Date: 20090831
  Receipt Date: 20090820
  Transmission Date: 20100115
  Serious: Yes (Hospitalization, Disabling, Other)
  Sender: FDA-Public Use
  Company Number: US-AVENTIS-200917533US

PATIENT
  Sex: Female
  Weight: 76.82 kg

DRUGS (20)
  1. LOVENOX [Suspect]
     Indication: MITRAL VALVE REPLACEMENT
     Dosage: DOSE: UNK
  2. LOVENOX [Suspect]
  3. MORPHINE [Suspect]
     Dosage: DOSE: UNK
     Route: 051
  4. LASIX [Concomitant]
     Dosage: DOSE: UNK
  5. PREMARIN [Concomitant]
     Dosage: DOSE: UNK
  6. PRENATAL VITAMINS                  /01549301/ [Concomitant]
     Dosage: DOSE: UNK
  7. LEVOTHROID [Concomitant]
     Dosage: DOSE: UNK
  8. POTASSIUM CHLORIDE [Concomitant]
     Dosage: DOSE: UNK
  9. NARDIL                             /00037202/ [Concomitant]
     Indication: DEPRESSION
     Dosage: DOSE: UNK
  10. FENTANYL [Concomitant]
     Dosage: DOSE: UNK
  11. OXYCONTIN [Concomitant]
     Dosage: DOSE: UNK
  12. OPIUM ALKALOIDS AND DERIVATIVES [Concomitant]
     Dosage: DOSE: UNK
  13. VIT D [Concomitant]
     Dosage: DOSE: UNK
  14. MULTI-VITAMINS [Concomitant]
     Dosage: DOSE: UNK
  15. VALIUM [Concomitant]
     Dosage: DOSE: UNK
  16. LAXATIVES [Concomitant]
     Indication: CONSTIPATION
     Dosage: DOSE: UNK
  17. STOOL SOFTENER [Concomitant]
     Dosage: DOSE: UNK
  18. FOLIC ACID [Concomitant]
     Dosage: DOSE: UNK
  19. IRON [Concomitant]
     Dosage: DOSE: UNK
  20. LYRICA [Concomitant]
     Indication: FIBROMYALGIA
     Dosage: DOSE: UNK

REACTIONS (8)
  - BLOOD BLISTER [None]
  - COMA [None]
  - CONTUSION [None]
  - GASTROINTESTINAL NECROSIS [None]
  - HAEMORRHAGE [None]
  - INJECTION SITE HAEMATOMA [None]
  - NEUROPATHY PERIPHERAL [None]
  - PNEUMONIA [None]
